FAERS Safety Report 21440396 (Version 1)
Quarter: 2022Q4

REPORT INFORMATION
  Report Type: Spontaneous
  Country: US (occurrence: US)
  Receive Date: 20221011
  Receipt Date: 20221011
  Transmission Date: 20230113
  Serious: Yes (Other)
  Sender: FDA-Public Use
  Company Number: US-AMNEAL PHARMACEUTICALS-2021-AMRX-05319

PATIENT
  Age: 64 Year
  Sex: Male

DRUGS (9)
  1. LIORESAL [Suspect]
     Active Substance: BACLOFEN
     Indication: Muscle spasms
     Dosage: UNK
     Route: 037
     Dates: start: 20210802, end: 2021
  2. LIORESAL [Suspect]
     Active Substance: BACLOFEN
     Indication: Spinal pain
     Dosage: 90 ?G, \DAY
     Route: 037
     Dates: start: 20211001
  3. GABLOFEN [Suspect]
     Active Substance: BACLOFEN
     Indication: Muscle spasms
     Dosage: UNK
     Route: 037
  4. GABLOFEN [Suspect]
     Active Substance: BACLOFEN
     Indication: Spinal pain
  5. VOLTAREN [Concomitant]
     Active Substance: DICLOFENAC SODIUM
  6. ^BERTAS^ PRESCRIPTION MEDICATION [Concomitant]
  7. OPIOID MEDICATION (UNSPECIFIED) [Concomitant]
  8. UNSPECIFIED MUSCLE RELAXERS [Concomitant]
  9. VALIUM [Concomitant]
     Active Substance: DIAZEPAM
     Dosage: 17.5 UNK, EVERY 48 HOURS

REACTIONS (2)
  - Therapy non-responder [Not Recovered/Not Resolved]
  - Mobility decreased [Not Recovered/Not Resolved]

NARRATIVE: CASE EVENT DATE: 20210802
